FAERS Safety Report 5652039-6 (Version None)
Quarter: 2008Q1

REPORT INFORMATION
  Report Type: 
  Country: None (occurrence: None)
  Receive Date: 20080305
  Receipt Date: 20080222
  Transmission Date: 20080703
  Serious: Yes (Hospitalization)
  Sender: FDA-Public Use
  Company Number: BR-PFIZER INC-2008016532

PATIENT
  Age: 77 Year
  Sex: Male

DRUGS (3)
  1. SERTRALINE [Suspect]
     Indication: DEPRESSION
     Dosage: DAILY DOSE:100MG
  2. CAPTOPRIL [Concomitant]
     Indication: HYPERTENSION
     Dosage: DAILY DOSE:67.5MG
  3. NPH INSULIN [Concomitant]
     Indication: DIABETES MELLITUS
     Dosage: DAILY DOSE:35I.U.

REACTIONS (3)
  - HYPERKALAEMIA [None]
  - HYPONATRAEMIA [None]
  - INAPPROPRIATE ANTIDIURETIC HORMONE SECRETION [None]
